FAERS Safety Report 12369177 (Version 5)
Quarter: 2016Q3

REPORT INFORMATION
  Report Type: Spontaneous
  Country: US (occurrence: US)
  Receive Date: 20160513
  Receipt Date: 20160726
  Transmission Date: 20161109
  Serious: Yes (Hospitalization, Other)
  Sender: FDA-Public Use
  Company Number: US-PFIZER INC-2016251521

PATIENT
  Age: 54 Year
  Sex: Male
  Weight: 80.74 kg

DRUGS (23)
  1. TIZANIDINE. [Concomitant]
     Active Substance: TIZANIDINE
     Indication: RHABDOMYOLYSIS
     Dosage: 8 MG, 3X/DAY
     Dates: start: 20150101
  2. KEPPRA [Concomitant]
     Active Substance: LEVETIRACETAM
     Indication: TREMOR
     Dosage: 500 MG, UNK
     Dates: start: 20140901
  3. CITALOPRAM [Concomitant]
     Active Substance: CITALOPRAM HYDROBROMIDE
     Indication: DEPRESSION
     Dosage: 40 MG, UNK
     Dates: start: 20080101
  4. LYRICA [Suspect]
     Active Substance: PREGABALIN
     Indication: SEIZURE
     Dosage: 50 MG, UNK
     Dates: start: 2014
  5. LYRICA [Suspect]
     Active Substance: PREGABALIN
     Dosage: 150 MG, UNK
  6. MELOXICAM. [Concomitant]
     Active Substance: MELOXICAM
     Indication: PAIN
     Dosage: 15 MG, UNK
     Dates: start: 20160301
  7. MELOXICAM. [Concomitant]
     Active Substance: MELOXICAM
     Dosage: 15MG ONE TABLET IN THE MORNING
     Dates: start: 20160505
  8. CELEXA [Concomitant]
     Active Substance: CITALOPRAM HYDROBROMIDE
     Dosage: UNK
     Dates: start: 20120101
  9. DIAZEPAM. [Concomitant]
     Active Substance: DIAZEPAM
     Indication: GENERAL PHYSICAL CONDITION ABNORMAL
     Dosage: UNK
     Dates: start: 20150101
  10. LYRICA [Suspect]
     Active Substance: PREGABALIN
     Dosage: 225 MG, 4X/DAY
     Dates: start: 20160301
  11. IBUPROFEN. [Concomitant]
     Active Substance: IBUPROFEN
     Indication: PAIN
     Dosage: UNK
     Dates: start: 20120101
  12. LYRICA [Suspect]
     Active Substance: PREGABALIN
     Indication: NEURALGIA
     Dosage: 75 MG, UNK
  13. LISINOPRIL. [Concomitant]
     Active Substance: LISINOPRIL
     Dosage: 20 MG, 1X/DAY
     Dates: start: 20120101
  14. TIZANIDINE. [Concomitant]
     Active Substance: TIZANIDINE
     Indication: MUSCULOSKELETAL DISCOMFORT
     Dosage: 4 MG, UNK
     Dates: start: 20151201
  15. DIAZEPAM. [Concomitant]
     Active Substance: DIAZEPAM
     Indication: INSOMNIA
     Dosage: 5 MG, ONE TABLET AT BEDTIME
     Dates: start: 20160101
  16. LYRICA [Suspect]
     Active Substance: PREGABALIN
     Indication: CEREBROVASCULAR ACCIDENT
     Dosage: 100 MG, UNK
  17. LYRICA [Suspect]
     Active Substance: PREGABALIN
     Dosage: 300 MG, 3X/DAY
     Dates: start: 20140101
  18. LYRICA [Suspect]
     Active Substance: PREGABALIN
     Dosage: 300 MG, UNK
     Dates: start: 20140901
  19. KEPPRA [Concomitant]
     Active Substance: LEVETIRACETAM
     Indication: SEIZURE
     Dosage: 500MG, ONE TABLET TWICE A DAY
     Dates: start: 20150101
  20. LISINOPRIL. [Concomitant]
     Active Substance: LISINOPRIL
     Indication: BLOOD PRESSURE ABNORMAL
     Dosage: 20 MG, UNK
     Dates: start: 20080101
  21. CELEXA [Concomitant]
     Active Substance: CITALOPRAM HYDROBROMIDE
     Dosage: 40 MG, DAILY
     Dates: start: 201601
  22. DIAZEPAM. [Concomitant]
     Active Substance: DIAZEPAM
     Dosage: 10 MG 1 PILL AT NIGHT
     Dates: start: 20160301
  23. LYRICA [Suspect]
     Active Substance: PREGABALIN
     Dosage: 225 MG, 3X/DAY

REACTIONS (8)
  - Drug ineffective [Recovered/Resolved]
  - Cellulitis [Recovered/Resolved]
  - Weight decreased [Recovered/Resolved]
  - Weight increased [Recovered/Resolved]
  - Concussion [Recovered/Resolved]
  - Fall [Recovered/Resolved]
  - Intervertebral disc protrusion [Not Recovered/Not Resolved]
  - Prescribed overdose [Unknown]

NARRATIVE: CASE EVENT DATE: 20140101
